FAERS Safety Report 7753401-8 (Version None)
Quarter: 2011Q3

REPORT INFORMATION
  Report Type: 
  Country: None (occurrence: None)
  Receive Date: 20110915
  Receipt Date: 20110906
  Transmission Date: 20111222
  Serious: Yes (Hospitalization)
  Sender: FDA-Public Use
  Company Number: US-JNJFOC-20110705782

PATIENT
  Sex: Male
  Weight: 99.79 kg

DRUGS (1)
  1. STELARA [Suspect]
     Indication: PSORIASIS
     Route: 058
     Dates: start: 20110501

REACTIONS (10)
  - CELLULITIS [None]
  - PYREXIA [None]
  - JOINT INJURY [None]
  - FEELING HOT [None]
  - OEDEMA PERIPHERAL [None]
  - CONTUSION [None]
  - ERYTHEMA [None]
  - ARTHRALGIA [None]
  - FALL [None]
  - STAPHYLOCOCCAL INFECTION [None]
